FAERS Safety Report 8923796 (Version 1)
Quarter: 2012Q4

REPORT INFORMATION
  Report Type: 
  Country: CA (occurrence: CA)
  Receive Date: 20121126
  Receipt Date: 20121126
  Transmission Date: 20130627
  Serious: Yes (Hospitalization)
  Sender: FDA-Public Use
  Company Number: CA-ASTRAZENECA-2012SE87045

PATIENT
  Sex: Male

DRUGS (4)
  1. SEROQUEL [Suspect]
     Route: 048
  2. BIPHENTIN [Suspect]
     Route: 065
  3. BIPHENTIN [Suspect]
     Route: 065
  4. BIPHENTIN [Suspect]
     Route: 065

REACTIONS (3)
  - Concomitant disease aggravated [Unknown]
  - Paranoia [Unknown]
  - Psychotic disorder [Unknown]
